FAERS Safety Report 4548270-3 (Version None)
Quarter: 2005Q1

REPORT INFORMATION
  Report Type: 
  Country: None (occurrence: None)
  Receive Date: 20050110
  Receipt Date: 20041227
  Transmission Date: 20050727
  Serious: Yes (Other)
  Sender: FDA-Public Use
  Company Number: JP-JNJFOC-20050100894

PATIENT
  Sex: Male

DRUGS (5)
  1. ITRIZOLE [Suspect]
     Route: 049
  2. ITRIZOLE [Suspect]
     Route: 049
  3. ITRIZOLE [Suspect]
     Indication: ONYCHOMYCOSIS
     Route: 049
  4. NETICONAZOLE HYDROCHLORIDE [Concomitant]
     Route: 061
  5. NETICONAZOLE HYDROCHLORIDE [Concomitant]
     Indication: ONYCHOMYCOSIS
     Route: 061

REACTIONS (2)
  - BLOOD ALKALINE PHOSPHATASE INCREASED [None]
  - BLOOD UREA INCREASED [None]
